FAERS Safety Report 22065401 (Version 1)
Quarter: 2023Q1

REPORT INFORMATION
  Report Type: Spontaneous
  Country: US (occurrence: US)
  Receive Date: 20230306
  Receipt Date: 20230306
  Transmission Date: 20230417
  Serious: No
  Sender: FDA-Public Use
  Company Number: US-SA-SAC20230306000048

PATIENT
  Sex: Female

DRUGS (1)
  1. DUPIXENT [Suspect]
     Active Substance: DUPILUMAB
     Indication: Product used for unknown indication
     Dosage: 300 MG, OTHER
     Route: 058

REACTIONS (5)
  - Ocular hyperaemia [Recovering/Resolving]
  - Eye discharge [Not Recovered/Not Resolved]
  - Condition aggravated [Unknown]
  - Conjunctivitis [Recovering/Resolving]
  - Therapeutic response decreased [Unknown]
